FAERS Safety Report 6340810-7 (Version None)
Quarter: 2009Q3

REPORT INFORMATION
  Report Type: 
  Country: None (occurrence: None)
  Receive Date: 20090904
  Receipt Date: 20090825
  Transmission Date: 20100115
  Serious: Yes (Disabling, Other)
  Sender: FDA-Public Use
  Company Number: PHHY2009NZ33249

PATIENT
  Sex: Male

DRUGS (7)
  1. TASIGNA [Suspect]
     Indication: CHRONIC MYELOID LEUKAEMIA
     Dosage: 400 MG, BID
     Route: 048
     Dates: start: 20070927, end: 20090108
  2. TASIGNA [Suspect]
     Dosage: UNK
  3. TRANSFUSIONS [Concomitant]
  4. ALLOPURINOL [Concomitant]
     Indication: GOUT
     Dosage: 300 MG DAILY
     Route: 048
  5. FRUSEMIDE [Concomitant]
     Indication: FLUID RETENTION
     Dosage: 40-80 MG DAILY
     Route: 048
     Dates: start: 20090329
  6. OMEPRAZOLE [Concomitant]
     Indication: HIATUS HERNIA
     Dosage: 20 MG DAILY
     Route: 048
     Dates: start: 20071012, end: 20071019
  7. PHOSPHATE [Concomitant]
     Dosage: 1 TABLET DAILY
     Route: 048

REACTIONS (10)
  - ANAEMIA [None]
  - BLOOD CREATININE INCREASED [None]
  - CARDIAC FAILURE [None]
  - CHROMOSOME ANALYSIS ABNORMAL [None]
  - DIABETES MELLITUS [None]
  - ELECTROCARDIOGRAM QT PROLONGED [None]
  - FLUID RETENTION [None]
  - GAMMA-GLUTAMYLTRANSFERASE INCREASED [None]
  - GLOMERULAR FILTRATION RATE DECREASED [None]
  - PANCYTOPENIA [None]
